FAERS Safety Report 21476660 (Version 1)
Quarter: 2022Q4

REPORT INFORMATION
  Report Type: Spontaneous
  Country: US (occurrence: None)
  Receive Date: 20221019
  Receipt Date: 20221019
  Transmission Date: 20230113
  Serious: No
  Sender: FDA-Public Use
  Company Number: US-ADAMAS Pharma-ADM202206-001865

PATIENT
  Age: 75 Year
  Sex: Female

DRUGS (5)
  1. GOCOVRI [Suspect]
     Active Substance: AMANTADINE
     Indication: Parkinson^s disease
     Route: 048
     Dates: start: 20220616
  2. GOCOVRI [Suspect]
     Active Substance: AMANTADINE
     Indication: Dyskinesia
  3. BIOTIN [Concomitant]
     Active Substance: BIOTIN
     Dosage: 1000 MCG
  4. LUTEIN [Concomitant]
     Active Substance: LUTEIN
     Dosage: 20 MG
  5. VITAMIN D3 [Concomitant]
     Active Substance: CHOLECALCIFEROL
     Dosage: NOT PROVIDED

REACTIONS (4)
  - Abdominal distension [Not Recovered/Not Resolved]
  - Pyrexia [Unknown]
  - Dizziness [Not Recovered/Not Resolved]
  - Drug ineffective [Unknown]

NARRATIVE: CASE EVENT DATE: 20220601
